FAERS Safety Report 6497349-8 (Version None)
Quarter: 2009Q4

REPORT INFORMATION
  Report Type: 
  Country: None (occurrence: None)
  Receive Date: 20091215
  Receipt Date: 20091007
  Transmission Date: 20100525
  Serious: No
  Sender: FDA-Public Use
  Company Number: A0810740A

PATIENT
  Age: 76 Year
  Sex: Male

DRUGS (12)
  1. AVODART [Suspect]
     Indication: BENIGN PROSTATIC HYPERPLASIA
     Dosage: .5MG PER DAY
     Route: 048
     Dates: start: 20070101
  2. VITAMINS [Concomitant]
  3. FISH OILS [Concomitant]
  4. LISINOPRIL [Concomitant]
  5. ATENOLOL [Concomitant]
  6. ASPIRIN [Concomitant]
  7. CENTRUM SILVER [Concomitant]
  8. SAWPALMETTO [Concomitant]
  9. TAROSIN [Concomitant]
  10. CHLORTHALIDONE [Concomitant]
  11. LIPITOR [Concomitant]
  12. FOLATE [Concomitant]

REACTIONS (1)
  - MEMORY IMPAIRMENT [None]
